FAERS Safety Report 7704709-3 (Version None)
Quarter: 2011Q3

REPORT INFORMATION
  Report Type: 
  Country: None (occurrence: None)
  Receive Date: 20110823
  Receipt Date: 20110328
  Transmission Date: 20111222
  Serious: Yes (Other)
  Sender: FDA-Public Use
  Company Number: US-BRISTOL-MYERS SQUIBB COMPANY-15629116

PATIENT
  Sex: Female

DRUGS (9)
  1. ESTRADIOL [Suspect]
     Route: 062
  2. CENESTIN [Suspect]
     Indication: HORMONE REPLACEMENT THERAPY
  3. PREMARIN [Suspect]
     Indication: HORMONE REPLACEMENT THERAPY
  4. CLIMARA [Suspect]
     Indication: HORMONE REPLACEMENT THERAPY
     Dosage: TRANSDERMAL PATCH
  5. PROMETRIUM [Suspect]
     Indication: HORMONE REPLACEMENT THERAPY
  6. ESTRACE [Suspect]
     Indication: HORMONE REPLACEMENT THERAPY
  7. AYGESTIN [Suspect]
     Indication: HORMONE REPLACEMENT THERAPY
  8. PREMPHASE (PREMARIN;CYCRIN 14/14) [Suspect]
     Indication: HORMONE REPLACEMENT THERAPY
  9. ESTRADIOL [Suspect]
     Indication: HORMONE REPLACEMENT THERAPY

REACTIONS (1)
  - BREAST CANCER [None]
